FAERS Safety Report 23454206 (Version 1)
Quarter: 2024Q1

REPORT INFORMATION
  Report Type: Report from Study
  Country: CA (occurrence: CA)
  Receive Date: 20240130
  Receipt Date: 20240130
  Transmission Date: 20240410
  Serious: Yes (Other)
  Sender: FDA-Public Use
  Company Number: CA-ABBVIE-5604757

PATIENT
  Sex: Male

DRUGS (1)
  1. HUMIRA [Suspect]
     Active Substance: ADALIMUMAB
     Indication: Psoriatic arthropathy
     Dosage: FORM STRENGTH: 40 MILLIGRAM
     Route: 058
     Dates: start: 20090330

REACTIONS (5)
  - Dialysis [Unknown]
  - Gastroenteritis viral [Unknown]
  - Pulmonary oedema [Unknown]
  - Pneumonia influenzal [Unknown]
  - Malaise [Unknown]

NARRATIVE: CASE EVENT DATE: 20240101
